FAERS Safety Report 9932388 (Version 1)
Quarter: 2014Q1

REPORT INFORMATION
  Report Type: Spontaneous
  Country: US (occurrence: US)
  Receive Date: 20140228
  Receipt Date: 20140228
  Transmission Date: 20141002
  Serious: No
  Sender: FDA-Public Use
  Company Number: US-ABBVIE-13P-163-1152554-00

PATIENT
  Age: 59 Year
  Sex: Male
  Weight: 158.9 kg

DRUGS (2)
  1. ANDROGEL [Suspect]
     Indication: BLOOD TESTOSTERONE DECREASED
     Route: 061
     Dates: start: 201308
  2. ATENOLOL [Concomitant]
     Indication: BLOOD PRESSURE

REACTIONS (3)
  - Feeling abnormal [Not Recovered/Not Resolved]
  - Blood testosterone decreased [Not Recovered/Not Resolved]
  - Weight loss poor [Not Recovered/Not Resolved]
